FAERS Safety Report 5444067-0 (Version None)
Quarter: 2007Q3

REPORT INFORMATION
  Report Type: 
  Country: None (occurrence: None)
  Receive Date: 20070831
  Receipt Date: 20070821
  Transmission Date: 20080115
  Serious: Yes (Hospitalization)
  Sender: FDA-Public Use
  Company Number: 1-15237001 MED-07180

PATIENT
  Age: 50 Year
  Sex: Male

DRUGS (5)
  1. AMITRIPTYLINE HCL [Suspect]
     Indication: OVERDOSE
     Dosage: ABOUT 13.5 GM SINGLE INGESTION, ORAL
     Route: 048
  2. OXCARBAZEPINE [Concomitant]
  3. LORAZEPAM [Concomitant]
  4. SERTRALINE [Concomitant]
  5. HYDROXYZINE [Concomitant]

REACTIONS (12)
  - BLOOD MAGNESIUM DECREASED [None]
  - BLOOD PH INCREASED [None]
  - BLOOD POTASSIUM DECREASED [None]
  - BLOOD SODIUM INCREASED [None]
  - COMA [None]
  - CONVULSION [None]
  - ELECTROCARDIOGRAM ABNORMAL [None]
  - ELECTROCARDIOGRAM QRS COMPLEX PROLONGED [None]
  - OVERDOSE [None]
  - PULSE ABSENT [None]
  - TACHYCARDIA [None]
  - THERAPEUTIC RESPONSE DELAYED [None]
